FAERS Safety Report 8438019-6 (Version None)
Quarter: 2012Q2

REPORT INFORMATION
  Report Type: 
  Country: None (occurrence: None)
  Receive Date: 20120614
  Receipt Date: 20120607
  Transmission Date: 20120825
  Serious: Yes (Other)
  Sender: FDA-Public Use
  Company Number: JP-AMGEN-JPNCT2011065994

PATIENT
  Age: 63 Year
  Sex: Male
  Weight: 51 kg

DRUGS (10)
  1. IRINOTECAN HYDROCHLORIDE [Suspect]
     Indication: COLORECTAL CANCER
     Dosage: 237 MG, Q2WK
     Route: 041
     Dates: start: 20110318, end: 20110930
  2. FLUOROURACIL [Suspect]
     Route: 041
     Dates: start: 20110318, end: 20110930
  3. FLUOROURACIL [Suspect]
     Route: 041
     Dates: start: 20111111, end: 20111209
  4. FLUOROURACIL [Suspect]
     Indication: COLORECTAL CANCER
     Route: 040
     Dates: start: 20110318, end: 20110930
  5. OXALIPLATIN [Concomitant]
     Indication: COLORECTAL CANCER
     Route: 041
     Dates: start: 20111111, end: 20111209
  6. LEVOLEUCOVORIN CALCIUM [Suspect]
     Indication: COLORECTAL CANCER
     Route: 041
     Dates: start: 20110318, end: 20110930
  7. PANITUMUMAB [Suspect]
     Dosage: 254 MG, Q2WK
     Route: 041
     Dates: start: 20110422, end: 20110930
  8. FLUOROURACIL [Suspect]
     Route: 040
     Dates: start: 20111111, end: 20111209
  9. LEVOLEUCOVORIN CALCIUM [Suspect]
     Route: 041
     Dates: start: 20111111, end: 20111209
  10. PANITUMUMAB [Suspect]
     Indication: COLORECTAL CANCER
     Dosage: 318 MG, Q2WK
     Route: 041
     Dates: start: 20110318, end: 20110318

REACTIONS (3)
  - INTERSTITIAL LUNG DISEASE [None]
  - ORAL HERPES [None]
  - THROMBOSIS [None]
